FAERS Safety Report 25447987 (Version 1)
Quarter: 2025Q2

REPORT INFORMATION
  Report Type: Spontaneous
  Country: UG (occurrence: UG)
  Receive Date: 20250617
  Receipt Date: 20250617
  Transmission Date: 20250716
  Serious: Yes (Hospitalization, Other)
  Sender: PURDUE
  Company Number: UG-NAPPMUNDI-GBR-2025-0126433

PATIENT
  Sex: Female

DRUGS (2)
  1. MORPHINE SULFATE [Suspect]
     Active Substance: MORPHINE SULFATE
     Indication: Pain
     Route: 048
  2. MORPHINE SULFATE [Suspect]
     Active Substance: MORPHINE SULFATE
     Indication: Pain
     Route: 048

REACTIONS (4)
  - Drug withdrawal syndrome [Unknown]
  - Drug dependence [Unknown]
  - Suicidal ideation [Unknown]
  - Depression [Unknown]
